FAERS Safety Report 13128599 (Version 1)
Quarter: 2017Q1

REPORT INFORMATION
  Report Type: Spontaneous
  Country: US (occurrence: US)
  Receive Date: 20170118
  Receipt Date: 20170118
  Transmission Date: 20170428
  Serious: Yes (Hospitalization)
  Sender: FDA-Public Use
  Company Number: US-ROCHE-1880980

PATIENT
  Sex: Female

DRUGS (2)
  1. XELODA [Suspect]
     Active Substance: CAPECITABINE
     Dosage: Q PM
     Route: 048
     Dates: end: 20161224
  2. XELODA [Suspect]
     Active Substance: CAPECITABINE
     Indication: BREAST CANCER
     Dosage: Q AM
     Route: 048
     Dates: start: 20161021

REACTIONS (3)
  - Effusion [Unknown]
  - Drug intolerance [Unknown]
  - Drug ineffective [Unknown]
